FAERS Safety Report 7257493-4 (Version None)
Quarter: 2011Q1

REPORT INFORMATION
  Report Type: 
  Country: None (occurrence: None)
  Receive Date: 20110129
  Receipt Date: 20100608
  Transmission Date: 20110831
  Serious: No
  Sender: FDA-Public Use
  Company Number: US-ABBOTT-10P-163-0641659-00

PATIENT
  Sex: Female
  Weight: 53.118 kg

DRUGS (17)
  1. FOLIC ACID [Concomitant]
     Indication: PRODUCT USED FOR UNKNOWN INDICATION
  2. PREDNISONE [Concomitant]
     Dates: start: 20100301
  3. OMEPRAZOLE [Concomitant]
     Indication: PRODUCT USED FOR UNKNOWN INDICATION
  4. IRON [Concomitant]
     Indication: ANAEMIA
     Dates: start: 20000101
  5. NEPHROCAPS [Concomitant]
     Indication: RENAL DISORDER
     Dates: start: 20000101
  6. ARANESP [Concomitant]
     Indication: IRON DEFICIENCY ANAEMIA
     Route: 050
  7. HUMIRA [Suspect]
     Indication: RHEUMATOID ARTHRITIS
     Dates: start: 20100311, end: 20100311
  8. AGGRENOX [Concomitant]
     Indication: PROPHYLAXIS
  9. LISINOPRIL [Concomitant]
     Indication: HYPERTENSION
  10. HUMIRA [Suspect]
     Route: 058
     Dates: start: 20100428
  11. ATENOLOL [Concomitant]
     Indication: HYPERTENSION
  12. AGGRENOX [Concomitant]
     Indication: TRANSIENT ISCHAEMIC ATTACK
  13. PREDNISONE [Concomitant]
     Indication: RHEUMATOID ARTHRITIS
     Dosage: 40 MG ONCE DAILY TO START, THEN WEANED DOWN AND OFF MEDICATION
     Dates: start: 20090901, end: 20100311
  14. CALCIUM [Concomitant]
     Indication: PRODUCT USED FOR UNKNOWN INDICATION
  15. IRON SUPPLEMENT [Concomitant]
     Indication: BLOOD IRON DECREASED
  16. HUMIRA [Suspect]
     Dates: start: 20100414, end: 20100414
  17. CALCIUM W/VITAMIN D [Concomitant]
     Indication: PRODUCT USED FOR UNKNOWN INDICATION

REACTIONS (7)
  - INJECTION SITE PAIN [None]
  - BLOOD IRON DECREASED [None]
  - MYALGIA [None]
  - ARTHRALGIA [None]
  - WRONG TECHNIQUE IN DRUG USAGE PROCESS [None]
  - INJECTION SITE HAEMORRHAGE [None]
  - FALL [None]
